FAERS Safety Report 6060940-7 (Version None)
Quarter: 2009Q1

REPORT INFORMATION
  Report Type: 
  Country: None (occurrence: None)
  Receive Date: 20090130
  Receipt Date: 20090130
  Transmission Date: 20090719
  Serious: No
  Sender: FDA-Public Use
  Company Number: None

PATIENT
  Age: 68 Year
  Sex: Male
  Weight: 137.9 kg

DRUGS (1)
  1. TEMSIROLIMUS [Suspect]
     Indication: RENAL CELL CARCINOMA
     Dosage: 25 MG QWEEK IV
     Route: 042
     Dates: start: 20080924, end: 20081128

REACTIONS (3)
  - HALLUCINATION [None]
  - HEADACHE [None]
  - NIGHTMARE [None]
